FAERS Safety Report 5136055-9 (Version None)
Quarter: 2006Q4

REPORT INFORMATION
  Report Type: 
  Country: None (occurrence: None)
  Receive Date: 20061020
  Receipt Date: 20061004
  Transmission Date: 20070319
  Serious: Yes (Other)
  Sender: FDA-Public Use
  Company Number: 2006-04-0116

PATIENT
  Age: 28 Year
  Weight: 66 kg

DRUGS (3)
  1. AERIUS (DESLORATADINE) (DESLORATADINE) [Suspect]
     Indication: RHINITIS ALLERGIC
     Dosage: 5 MG; QD; PO
     Route: 048
     Dates: start: 20050501, end: 20051201
  2. AERIUS (DESLORATADINE) (DESLORATADINE) [Suspect]
     Indication: RHINITIS ALLERGIC
     Dosage: 5 MG; QD; PO
     Route: 048
     Dates: start: 20060329, end: 20060331
  3. AERIUS (DESLORATADINE) (DESLORATADINE) [Suspect]
     Indication: RHINITIS ALLERGIC
     Dosage: 5 MG; QD; PO
     Route: 048
     Dates: start: 20060403, end: 20060403

REACTIONS (4)
  - ABORTION SPONTANEOUS [None]
  - CERVICITIS [None]
  - DRUG EXPOSURE DURING PREGNANCY [None]
  - PREGNANCY [None]
